FAERS Safety Report 6619884-1 (Version None)
Quarter: 2010Q1

REPORT INFORMATION
  Report Type: 
  Country: None (occurrence: None)
  Receive Date: 20100309
  Receipt Date: 20100224
  Transmission Date: 20100710
  Serious: Yes (Death)
  Sender: FDA-Public Use
  Company Number: JP-PFIZER INC-2010025593

PATIENT
  Age: 89 Year
  Sex: Female

DRUGS (1)
  1. ZITHROMAC SR [Suspect]
     Indication: PYREXIA
     Dosage: 1 G, SINGLE
     Route: 048
     Dates: start: 20100220, end: 20100220

REACTIONS (1)
  - DYSPNOEA [None]
